FAERS Safety Report 21590272 (Version 1)
Quarter: 2022Q4

REPORT INFORMATION
  Report Type: Spontaneous
  Country: US (occurrence: None)
  Receive Date: 20221111
  Receipt Date: 20221111
  Transmission Date: 20230113
  Serious: Yes (Life-Threatening)
  Sender: FDA-Public Use
  Company Number: None

PATIENT
  Age: 62 Year
  Sex: Female
  Weight: 67.05 kg

DRUGS (3)
  1. GILOTRIF [Suspect]
     Active Substance: AFATINIB
  2. COSENTYX [Suspect]
     Active Substance: SECUKINUMAB
  3. GLIPIZIDE [Concomitant]
     Active Substance: GLIPIZIDE

REACTIONS (1)
  - Brief resolved unexplained event [None]

NARRATIVE: CASE EVENT DATE: 20221106
